FAERS Safety Report 13401024 (Version 2)
Quarter: 2017Q2

REPORT INFORMATION
  Report Type: Report from Study
  Country: ES (occurrence: ES)
  Receive Date: 20170404
  Receipt Date: 20170425
  Transmission Date: 20170830
  Serious: Yes (Other)
  Sender: FDA-Public Use
  Company Number: ES-VELOXIS PHARMACEUTICALS-1064968

PATIENT
  Age: 59 Year
  Sex: Female
  Weight: 81 kg

DRUGS (10)
  1. ENVARSUS XR [Suspect]
     Active Substance: TACROLIMUS
     Route: 048
     Dates: start: 20170223, end: 20170223
  2. ENVARSUS XR [Suspect]
     Active Substance: TACROLIMUS
     Indication: LIVER TRANSPLANT
     Route: 048
     Dates: start: 20170128, end: 20170202
  3. PARACETAMOL [Concomitant]
     Active Substance: ACETAMINOPHEN
  4. ADOPORT [Concomitant]
     Active Substance: TACROLIMUS
     Dates: start: 20170126, end: 20170126
  5. ENVARSUS XR [Suspect]
     Active Substance: TACROLIMUS
     Route: 048
     Dates: start: 20170206, end: 20170209
  6. ENVARSUS XR [Suspect]
     Active Substance: TACROLIMUS
     Route: 048
     Dates: start: 20170212, end: 20170212
  7. ENVARSUS XR [Suspect]
     Active Substance: TACROLIMUS
     Route: 048
     Dates: start: 20170213, end: 20170216
  8. ENVARSUS XR [Suspect]
     Active Substance: TACROLIMUS
     Route: 048
     Dates: start: 20170225, end: 20170227
  9. ADOPORT [Concomitant]
     Active Substance: TACROLIMUS
     Dates: start: 20170127, end: 20170127
  10. TRAMADOL. [Concomitant]
     Active Substance: TRAMADOL

REACTIONS (5)
  - Headache [Recovered/Resolved]
  - Renal failure [Recovering/Resolving]
  - Hypertension [Recovering/Resolving]
  - Incorrect dose administered [Unknown]
  - Immunosuppressant drug level increased [Recovering/Resolving]

NARRATIVE: CASE EVENT DATE: 20170131
